FAERS Safety Report 11882109 (Version 2)
Quarter: 2016Q1

REPORT INFORMATION
  Report Type: Spontaneous
  Country: JP (occurrence: JP)
  Receive Date: 20151231
  Receipt Date: 20160118
  Transmission Date: 20160526
  Serious: Yes (Hospitalization)
  Sender: FDA-Public Use
  Company Number: JP-RECORDATI RARE DISEASES-JP-R13005-15-00212

PATIENT
  Age: 36 Year
  Sex: Female

DRUGS (10)
  1. LASTET [Suspect]
     Active Substance: ETOPOSIDE
     Indication: CHORIOCARCINOMA
     Route: 065
  2. LEUCOVORIN. [Concomitant]
     Active Substance: LEUCOVORIN
     Indication: CHORIOCARCINOMA
     Route: 030
  3. COSMEGEN [Suspect]
     Active Substance: DACTINOMYCIN
     Indication: CHORIOCARCINOMA
     Route: 065
  4. COSMEGEN [Suspect]
     Active Substance: DACTINOMYCIN
     Route: 065
  5. METHOTREXATE [Suspect]
     Active Substance: METHOTREXATE
     Indication: CHORIOCARCINOMA
     Route: 065
  6. ENDOXAN [Suspect]
     Active Substance: CYCLOPHOSPHAMIDE
     Indication: CHORIOCARCINOMA
     Route: 065
  7. VANCOMYCIN [Suspect]
     Active Substance: VANCOMYCIN
     Indication: STAPHYLOCOCCUS TEST POSITIVE
     Route: 065
  8. GLYCERIN. [Concomitant]
     Active Substance: GLYCERIN
     Indication: INTRACRANIAL PRESSURE INCREASED
     Route: 065
  9. 5-FLUOROURACIL [Suspect]
     Active Substance: FLUOROURACIL
     Indication: CHORIOCARCINOMA
     Route: 065
  10. ONCOVIN [Suspect]
     Active Substance: VINCRISTINE SULFATE
     Indication: CHORIOCARCINOMA
     Route: 065

REACTIONS (7)
  - Shock haemorrhagic [Unknown]
  - Sepsis [Unknown]
  - Staphylococcus test positive [Unknown]
  - Acute kidney injury [Recovering/Resolving]
  - Disseminated intravascular coagulation [Unknown]
  - Respiratory failure [Unknown]
  - Pancytopenia [Unknown]
